FAERS Safety Report 6116211-3 (Version None)
Quarter: 2009Q1

REPORT INFORMATION
  Report Type: 
  Country: None (occurrence: None)
  Receive Date: 20090314
  Receipt Date: 20081203
  Transmission Date: 20090719
  Serious: No
  Sender: FDA-Public Use
  Company Number: US-ABBOTT-08P-163-0490794-00

PATIENT
  Sex: Female

DRUGS (4)
  1. HUMIRA [Suspect]
     Indication: PSORIASIS
     Route: 058
     Dates: start: 20071203
  2. PETHIDINE HYDROCHLORIDE [Concomitant]
     Indication: ANALGESIA
  3. UNSPECIFIED SLEEPING PILL [Concomitant]
     Indication: SLEEP DISORDER
     Route: 048
  4. UNSPECIFIED RELAXATION PILL [Concomitant]
     Indication: RELAXATION THERAPY
     Dosage: AS NEEDED DURING DAY
     Route: 048

REACTIONS (2)
  - INJECTION SITE IRRITATION [None]
  - INJECTION SITE PAIN [None]
